FAERS Safety Report 12067216 (Version 3)
Quarter: 2016Q2

REPORT INFORMATION
  Report Type: Spontaneous
  Country: US (occurrence: US)
  Receive Date: 20160210
  Receipt Date: 20160420
  Transmission Date: 20160815
  Serious: Yes (Other)
  Sender: FDA-Public Use
  Company Number: US-JNJFOC-20160118799

PATIENT
  Age: 37 Year
  Sex: Female

DRUGS (9)
  1. PROPRANOLOL [Concomitant]
     Active Substance: PROPRANOLOL\PROPRANOLOL HYDROCHLORIDE
     Indication: PRODUCT USED FOR UNKNOWN INDICATION
     Route: 065
  2. TOPAMAX [Suspect]
     Active Substance: TOPIRAMATE
     Indication: ATTENTION DEFICIT/HYPERACTIVITY DISORDER
     Route: 048
  3. TRILEPTAL [Concomitant]
     Active Substance: OXCARBAZEPINE
     Indication: PRODUCT USED FOR UNKNOWN INDICATION
     Route: 065
     Dates: start: 20150428
  4. LITHIUM. [Suspect]
     Active Substance: LITHIUM
     Indication: PRODUCT USED FOR UNKNOWN INDICATION
     Route: 065
     Dates: start: 20150417
  5. MELATONIN [Concomitant]
     Active Substance: MELATONIN
     Indication: PRODUCT USED FOR UNKNOWN INDICATION
     Route: 065
     Dates: start: 20150407
  6. TOPAMAX [Suspect]
     Active Substance: TOPIRAMATE
     Indication: ATTENTION DEFICIT/HYPERACTIVITY DISORDER
     Route: 048
  7. BENZOTROPINE [Concomitant]
     Active Substance: BENZTROPINE
     Indication: PRODUCT USED FOR UNKNOWN INDICATION
     Route: 065
  8. SEROQUEL [Concomitant]
     Active Substance: QUETIAPINE FUMARATE
     Indication: PRODUCT USED FOR UNKNOWN INDICATION
     Route: 065
     Dates: start: 20150408
  9. TOPAMAX [Suspect]
     Active Substance: TOPIRAMATE
     Indication: ATTENTION DEFICIT/HYPERACTIVITY DISORDER
     Dosage: 1 AT MORNING AND 1 AT NIGHT
     Route: 048
     Dates: start: 20150411

REACTIONS (13)
  - Adverse event [Unknown]
  - Cerebral disorder [Unknown]
  - Delusion [Unknown]
  - Off label use [Unknown]
  - Cognitive disorder [Unknown]
  - Amnesia [Unknown]
  - Dyskinesia [Unknown]
  - Visual impairment [Not Recovered/Not Resolved]
  - Loss of consciousness [Unknown]
  - Mental impairment [Unknown]
  - Product use issue [Unknown]
  - Confusional state [Unknown]
  - Sleep disorder [Unknown]

NARRATIVE: CASE EVENT DATE: 20160122
